FAERS Safety Report 15225452 (Version 2)
Quarter: 2018Q3

REPORT INFORMATION
  Report Type: Spontaneous
  Country: CH (occurrence: CH)
  Receive Date: 20180801
  Receipt Date: 20180813
  Transmission Date: 20181010
  Serious: Yes (Hospitalization)
  Sender: FDA-Public Use
  Company Number: CH-ROCHE-2162115

PATIENT
  Age: 80 Year
  Sex: Male

DRUGS (3)
  1. MABTHERA [Suspect]
     Active Substance: RITUXIMAB
     Route: 042
     Dates: start: 20180302
  2. MABTHERA [Suspect]
     Active Substance: RITUXIMAB
     Indication: MYASTHENIA GRAVIS
     Route: 042
     Dates: start: 20180215
  3. MESTINON [Suspect]
     Active Substance: PYRIDOSTIGMINE BROMIDE
     Indication: MYASTHENIA GRAVIS
     Route: 065
     Dates: start: 201709, end: 201709

REACTIONS (3)
  - Intentional product use issue [Unknown]
  - Myasthenia gravis crisis [Unknown]
  - Off label use [Unknown]

NARRATIVE: CASE EVENT DATE: 201805
